FAERS Safety Report 8167935-8 (Version None)
Quarter: 2012Q1

REPORT INFORMATION
  Report Type: 
  Country: None (occurrence: None)
  Receive Date: 20120227
  Receipt Date: 20120222
  Transmission Date: 20120608
  Serious: Yes (Other)
  Sender: FDA-Public Use
  Company Number: US-GLAXOSMITHKLINE-A0959816A

PATIENT
  Age: 25 Year
  Sex: Female
  Weight: 50 kg

DRUGS (10)
  1. FLOVENT [Concomitant]
     Indication: ASTHMA
  2. ALBUTEROL [Concomitant]
     Indication: ASTHMA
  3. SINGULAIR [Concomitant]
  4. VESICARE [Concomitant]
  5. GABAPENTIN [Concomitant]
     Indication: MIGRAINE
  6. AMBIEN [Concomitant]
  7. OMEPRAZOLE [Concomitant]
  8. BUPROPION HCL [Concomitant]
  9. LAMOTRIGINE [Suspect]
     Indication: BIPOLAR DISORDER
     Dosage: 250MG TWICE PER DAY
     Route: 065
     Dates: start: 20110315
  10. VYVANSE [Concomitant]

REACTIONS (6)
  - VISUAL FIELD DEFECT [None]
  - RETINAL DISORDER [None]
  - OVERDOSE [None]
  - VISUAL IMPAIRMENT [None]
  - PHOTOPSIA [None]
  - UVEITIS [None]
